FAERS Safety Report 12303800 (Version 3)
Quarter: 2017Q4

REPORT INFORMATION
  Report Type: Spontaneous
  Country: US (occurrence: US)
  Receive Date: 20160426
  Receipt Date: 20171123
  Transmission Date: 20180320
  Serious: No
  Sender: FDA-Public Use
  Company Number: US-JNJFOC-20160411133

PATIENT
  Sex: Male

DRUGS (24)
  1. RISPERDAL [Suspect]
     Active Substance: RISPERIDONE
     Indication: MAJOR DEPRESSION
     Dosage: EVERY NIGHT AT BEDTIME
     Route: 048
     Dates: start: 19990219
  2. RISPERDAL [Suspect]
     Active Substance: RISPERIDONE
     Indication: MAJOR DEPRESSION
     Dosage: MORNING
     Route: 048
     Dates: start: 19990220, end: 19990304
  3. RISPERDAL [Suspect]
     Active Substance: RISPERIDONE
     Indication: BIPOLAR DISORDER
     Dosage: MORNING AND BEDTIME
     Route: 048
     Dates: end: 19990219
  4. RISPERDAL [Suspect]
     Active Substance: RISPERIDONE
     Indication: BIPOLAR DISORDER
     Dosage: MORNING
     Route: 048
     Dates: start: 19990220, end: 19990304
  5. RISPERDAL [Suspect]
     Active Substance: RISPERIDONE
     Indication: BIPOLAR DISORDER
     Dosage: EVERY NIGHT AT BEDTIME
     Route: 048
     Dates: start: 19990220, end: 19990304
  6. RISPERDAL [Suspect]
     Active Substance: RISPERIDONE
     Indication: BIPOLAR DISORDER
     Dosage: EVERY MORNING
     Route: 048
     Dates: start: 19990305
  7. RISPERDAL [Suspect]
     Active Substance: RISPERIDONE
     Indication: POST-TRAUMATIC STRESS DISORDER
     Dosage: EVERY NIGHT AT BEDTIME
     Route: 048
     Dates: start: 19990220, end: 19990304
  8. RISPERDAL [Suspect]
     Active Substance: RISPERIDONE
     Indication: POST-TRAUMATIC STRESS DISORDER
     Dosage: EVERY NIGHT AT BEDTIME
     Route: 048
     Dates: start: 19990219
  9. RISPERDAL [Suspect]
     Active Substance: RISPERIDONE
     Indication: POST-TRAUMATIC STRESS DISORDER
     Dosage: MORNING AND BEDTIME
     Route: 048
     Dates: end: 19990219
  10. RISPERDAL [Suspect]
     Active Substance: RISPERIDONE
     Indication: MAJOR DEPRESSION
     Dosage: EVERY NIGHT AT BEDTIME
     Route: 048
     Dates: start: 19990220, end: 19990304
  11. RISPERDAL [Suspect]
     Active Substance: RISPERIDONE
     Indication: ATTENTION DEFICIT/HYPERACTIVITY DISORDER
     Dosage: EVERY MORNING
     Route: 048
     Dates: start: 19990305
  12. RISPERDAL [Suspect]
     Active Substance: RISPERIDONE
     Indication: ATTENTION DEFICIT/HYPERACTIVITY DISORDER
     Dosage: EVERY NIGHT AT BEDTIME
     Route: 048
     Dates: start: 19990219
  13. RISPERDAL [Suspect]
     Active Substance: RISPERIDONE
     Indication: POST-TRAUMATIC STRESS DISORDER
     Dosage: HALF EVERY MORNING AND 1 AT BEDTIME
     Route: 048
     Dates: start: 19990305
  14. RISPERDAL [Suspect]
     Active Substance: RISPERIDONE
     Indication: POST-TRAUMATIC STRESS DISORDER
     Dosage: MORNING
     Route: 048
     Dates: start: 19990220, end: 19990304
  15. RISPERDAL [Suspect]
     Active Substance: RISPERIDONE
     Indication: MAJOR DEPRESSION
     Dosage: EVERY MORNING
     Route: 048
     Dates: start: 19990305
  16. RISPERDAL [Suspect]
     Active Substance: RISPERIDONE
     Indication: ATTENTION DEFICIT/HYPERACTIVITY DISORDER
     Dosage: MORNING
     Route: 048
     Dates: start: 19990220, end: 19990304
  17. RISPERDAL [Suspect]
     Active Substance: RISPERIDONE
     Indication: ATTENTION DEFICIT/HYPERACTIVITY DISORDER
     Dosage: MORNING AND BEDTIME
     Route: 048
     Dates: end: 19990219
  18. RISPERDAL [Suspect]
     Active Substance: RISPERIDONE
     Indication: POST-TRAUMATIC STRESS DISORDER
     Dosage: EVERY MORNING
     Route: 048
     Dates: start: 19990305
  19. RISPERDAL [Suspect]
     Active Substance: RISPERIDONE
     Indication: MAJOR DEPRESSION
     Dosage: HALF EVERY MORNING AND 1 AT BEDTIME
     Route: 048
     Dates: start: 19990305
  20. RISPERDAL [Suspect]
     Active Substance: RISPERIDONE
     Indication: ATTENTION DEFICIT/HYPERACTIVITY DISORDER
     Dosage: EVERY NIGHT AT BEDTIME
     Route: 048
     Dates: start: 19990220, end: 19990304
  21. RISPERDAL [Suspect]
     Active Substance: RISPERIDONE
     Indication: MAJOR DEPRESSION
     Dosage: MORNING AND BEDTIME
     Route: 048
     Dates: end: 19990219
  22. RISPERDAL [Suspect]
     Active Substance: RISPERIDONE
     Indication: ATTENTION DEFICIT/HYPERACTIVITY DISORDER
     Dosage: HALF EVERY MORNING AND 1 AT BEDTIME
     Route: 048
     Dates: start: 19990305
  23. RISPERDAL [Suspect]
     Active Substance: RISPERIDONE
     Indication: BIPOLAR DISORDER
     Dosage: HALF EVERY MORNING AND 1 AT BEDTIME
     Route: 048
     Dates: start: 19990305
  24. RISPERDAL [Suspect]
     Active Substance: RISPERIDONE
     Indication: BIPOLAR DISORDER
     Dosage: EVERY NIGHT AT BEDTIME
     Route: 048
     Dates: start: 19990219

REACTIONS (1)
  - Obesity [Unknown]
